FAERS Safety Report 9270338 (Version 1)
Quarter: 2013Q2

REPORT INFORMATION
  Report Type: Report from Study
  Country: CA (occurrence: CA)
  Receive Date: 20130503
  Receipt Date: 20130503
  Transmission Date: 20140414
  Serious: Yes (Other)
  Sender: FDA-Public Use
  Company Number: CA-JNJFOC-20130501090

PATIENT
  Age: 27 Year
  Sex: Male
  Weight: 127 kg

DRUGS (1)
  1. REMICADE [Suspect]
     Indication: CROHN^S DISEASE
     Dosage: DURATION: 52 WEEKS
     Route: 042
     Dates: start: 20070627

REACTIONS (2)
  - Asthma [Recovering/Resolving]
  - Acute sinusitis [Recovered/Resolved]
